FAERS Safety Report 6558291-7 (Version None)
Quarter: 2010Q1

REPORT INFORMATION
  Report Type: 
  Country: None (occurrence: None)
  Receive Date: 20100129
  Receipt Date: 20100118
  Transmission Date: 20100710
  Serious: Yes (Other)
  Sender: FDA-Public Use
  Company Number: GB-JNJFOC-20071000647

PATIENT
  Sex: Female

DRUGS (12)
  1. ZYDOL SR [Suspect]
     Indication: BACK PAIN
     Route: 048
     Dates: start: 20070914, end: 20070926
  2. AMITRIPTYLINE HCL [Suspect]
     Indication: DRUG USE FOR UNKNOWN INDICATION
     Route: 065
  3. AMITRIPTYLINE HCL [Suspect]
     Route: 065
  4. AMITRIPTYLINE HCL [Suspect]
     Route: 065
  5. AMITRIPTYLINE HCL [Suspect]
     Route: 065
  6. OXYCONTIN [Suspect]
     Indication: BACK PAIN
     Route: 048
  7. OXYCONTIN [Suspect]
     Route: 048
  8. OXYCONTIN [Suspect]
     Route: 048
  9. OXYCODONE [Concomitant]
     Route: 065
  10. DIAZEPAM [Concomitant]
     Route: 065
  11. GABAPENTIN [Concomitant]
     Route: 065
  12. MELOXICAM [Concomitant]
     Route: 065

REACTIONS (4)
  - ANXIETY [None]
  - HYPERHIDROSIS [None]
  - PARANOIA [None]
  - WITHDRAWAL SYNDROME [None]
